FAERS Safety Report 23789095 (Version 1)
Quarter: 2024Q2

REPORT INFORMATION
  Report Type: Report from Study
  Country: KR (occurrence: KR)
  Receive Date: 20240426
  Receipt Date: 20240426
  Transmission Date: 20240716
  Serious: Yes (Hospitalization)
  Sender: FDA-Public Use
  Company Number: KR-Eisai-EC-2024-164277

PATIENT
  Age: 55 Year
  Sex: Female
  Weight: 47.7 kg

DRUGS (2)
  1. HALAVEN [Suspect]
     Active Substance: ERIBULIN MESYLATE
     Indication: HER2 positive breast cancer
     Dosage: 2.128 (DOSE UNIT UNKNOWN)
     Route: 042
     Dates: start: 20231108, end: 20240411
  2. TRASTUZUMAB [Suspect]
     Active Substance: TRASTUZUMAB
     Indication: HER2 positive breast cancer
     Dosage: 419.2 (DOSE UNIT UNKNOWN) AND FREQUENCY UNKNOWN.
     Route: 042
     Dates: start: 20231108, end: 20240405

REACTIONS (1)
  - Febrile neutropenia [Recovered/Resolved]

NARRATIVE: CASE EVENT DATE: 20240417
